FAERS Safety Report 6922564-6 (Version None)
Quarter: 2010Q3

REPORT INFORMATION
  Report Type: 
  Country: None (occurrence: None)
  Receive Date: 20100813
  Receipt Date: 20100730
  Transmission Date: 20110219
  Serious: Yes (Hospitalization, Other)
  Sender: FDA-Public Use
  Company Number: US-ELI_LILLY_AND_COMPANY-US201008003063

PATIENT
  Sex: Female

DRUGS (20)
  1. FORTEO [Suspect]
     Indication: OSTEOPOROSIS
  2. KEPPRA [Concomitant]
  3. PREDNISONE [Concomitant]
  4. DETROL [Concomitant]
  5. PRIMIDONE [Concomitant]
  6. ZOLOFT [Concomitant]
  7. METOPROLOL TARTRATE [Concomitant]
  8. LIPITOR [Concomitant]
  9. MACRODANTIN [Concomitant]
  10. ALENDRONATE SODIUM [Concomitant]
  11. ALPRAZOLAM [Concomitant]
  12. IRON [Concomitant]
  13. PRILOSEC [Concomitant]
  14. CRANBERRY [Concomitant]
  15. FOLIC ACID [Concomitant]
  16. CALCIUM [Concomitant]
  17. ASCORBIC ACID [Concomitant]
  18. FISH OIL [Concomitant]
  19. TYLENOL (CAPLET) [Concomitant]
  20. DIOVAN [Concomitant]

REACTIONS (11)
  - CARDIAC OPERATION [None]
  - CONVULSION [None]
  - CYSTITIS [None]
  - GASTROINTESTINAL INFECTION [None]
  - INJECTION SITE HAEMATOMA [None]
  - INJECTION SITE PAIN [None]
  - INTESTINAL OBSTRUCTION [None]
  - LOSS OF CONSCIOUSNESS [None]
  - OFF LABEL USE [None]
  - TRANSIENT ISCHAEMIC ATTACK [None]
  - VERTIGO [None]
